FAERS Safety Report 6885322-7 (Version None)
Quarter: 2010Q3

REPORT INFORMATION
  Report Type: 
  Country: None (occurrence: None)
  Receive Date: 20100729
  Receipt Date: 20100729
  Transmission Date: 20110219
  Serious: Yes (Disabling)
  Sender: FDA-Public Use
  Company Number: None

PATIENT
  Age: 28 Year
  Sex: Female
  Weight: 70.7611 kg

DRUGS (2)
  1. GAMUNEX [Suspect]
     Indication: IMMUNODEFICIENCY COMMON VARIABLE
     Dosage: 35 GM/350 ML Q5-6 WKS IV DRIP 2 DOSES IN A MONTHS
     Route: 041
     Dates: start: 20100219, end: 20100426
  2. GAMUNEX [Suspect]

REACTIONS (1)
  - HYPONATRAEMIA [None]
